FAERS Safety Report 7029397-3 (Version None)
Quarter: 2010Q4

REPORT INFORMATION
  Report Type: 
  Country: None (occurrence: None)
  Receive Date: 20101005
  Receipt Date: 20100929
  Transmission Date: 20110411
  Serious: Yes (Death)
  Sender: FDA-Public Use
  Company Number: PHHY2008JP16257

PATIENT
  Age: 30 Year
  Sex: Male

DRUGS (6)
  1. TEGRETOL [Suspect]
  2. MYSLEE [Suspect]
  3. METAMFETAMINE HYDROCHLORIDE [Suspect]
  4. LEVOMEPROMAZINE MALEATE [Suspect]
  5. PHENOBARBITAL [Suspect]
  6. AMFETAMINE [Suspect]
     Dosage: UNK

REACTIONS (2)
  - ASTHENIA [None]
  - DRUG TOXICITY [None]
